FAERS Safety Report 5607025-9 (Version None)
Quarter: 2008Q1

REPORT INFORMATION
  Report Type: 
  Country: None (occurrence: None)
  Receive Date: 20080129
  Receipt Date: 20080117
  Transmission Date: 20080703
  Serious: Yes (Death)
  Sender: FDA-Public Use
  Company Number: US-PFIZER INC-2008006496

PATIENT
  Sex: Female
  Weight: 159.09 kg

DRUGS (1)
  1. CHANTIX [Suspect]

REACTIONS (1)
  - HYPERTENSION [None]
